FAERS Safety Report 4451172-4 (Version None)
Quarter: 2004Q3

REPORT INFORMATION
  Report Type: 
  Country: None (occurrence: None)
  Receive Date: 20040916
  Receipt Date: 20040906
  Transmission Date: 20050211
  Serious: Yes (Other)
  Sender: FDA-Public Use
  Company Number: PHBS2004BR11870

PATIENT
  Age: 23 Year
  Sex: Male

DRUGS (3)
  1. TOFRANIL [Suspect]
     Dosage: 25 MG, QD
     Route: 048
  2. TEGRETOL [Suspect]
     Indication: DEPRESSION
     Dosage: 200 MG, QHS
     Route: 048
  3. ORAP [Concomitant]
     Indication: DEPRESSION
     Dosage: 10 MG, QD
     Route: 048

REACTIONS (4)
  - BLISTER [None]
  - PRURITUS [None]
  - SKIN DESQUAMATION [None]
  - SWELLING FACE [None]
